FAERS Safety Report 4590153-7 (Version None)
Quarter: 2005Q1

REPORT INFORMATION
  Report Type: 
  Country: None (occurrence: None)
  Receive Date: 20050217
  Receipt Date: 20050204
  Transmission Date: 20050727
  Serious: Yes (Hospitalization)
  Sender: FDA-Public Use
  Company Number: CERZ-10777

PATIENT
  Age: 59 Year
  Sex: Male
  Weight: 86.3 kg

DRUGS (2)
  1. CEREZYME [Suspect]
     Indication: GAUCHER'S DISEASE
     Dosage: 1200 UNITS Q2WKS IV
     Route: 042
     Dates: start: 19970501
  2. MULTI-VITAMIN [Concomitant]

REACTIONS (1)
  - OSTEONECROSIS [None]
